FAERS Safety Report 8601785-0 (Version None)
Quarter: 2012Q3

REPORT INFORMATION
  Report Type: 
  Country: None (occurrence: None)
  Receive Date: 20120805
  Receipt Date: 20120724
  Transmission Date: 20120928
  Serious: Yes (Hospitalization, Other)
  Sender: FDA-Public Use
  Company Number: CIP11000524

PATIENT
  Age: 73 Year
  Sex: Female

DRUGS (28)
  1. NEURONTIN [Concomitant]
  2. CELEBREX [Concomitant]
  3. AZULFIDINE [Concomitant]
  4. XALATAN /01297301/ (LATANOPROST) [Concomitant]
  5. SIMCOR /03020801/ (NICOTINIC ACID, SIMVASTATIN) [Concomitant]
  6. METHOCARBAMOL [Concomitant]
  7. DARVOCET /00758701/ (DEXTROPROPOXYPHENE NAPSILATE, PARACETAMOL) [Concomitant]
  8. ACTONEL [Suspect]
     Indication: OSTEOPOROSIS
     Dosage: 35 MG WEEKLY, ORAL
     Route: 048
     Dates: start: 20030101
  9. CALCIUM CARBONATE [Concomitant]
  10. MAGNESIUM (MAGNESIUM) [Concomitant]
  11. FORTEO [Concomitant]
  12. CHROMIUM PICOLINATE (CHROMIUM PICOLINATE) [Concomitant]
  13. BACLOFEN [Concomitant]
  14. NEXIUM [Concomitant]
  15. SYNTHROID [Concomitant]
  16. ALLEGRA /01314202/ (FEXOFENADINE HYDROCHLORIDE) [Concomitant]
  17. FOSAMAX [Suspect]
     Dosage: 10 MG DAILY, ORAL ; 10 MG, DAILY, ORAL
     Route: 048
     Dates: start: 19990310, end: 20001215
  18. FOSAMAX [Suspect]
     Dosage: 70 MG ONCE WEEKLY, ORAL
     Route: 048
     Dates: start: 20010115, end: 20021220
  19. BONIVA [Suspect]
     Dosage: 150 MG ONCE MONTHLY, ORAL
     Route: 048
     Dates: start: 20080110, end: 20080314
  20. RECLAST [Suspect]
     Dosage: 5 MG/100 ML 5 MG
  21. OXYCODONE W/PARACETAMOL (OXYCODONE, PARACETAMOL) [Concomitant]
  22. COLCHICINE [Concomitant]
  23. ZINC (ZINC) [Concomitant]
  24. FISH OIL (FISH OIL) [Concomitant]
  25. CORTICOSTEROIDS [Concomitant]
  26. LOVAZA [Concomitant]
  27. ASPIRIN [Concomitant]
  28. B COMPLEX /00322001/ (CALCIUM PANTOTHENATE, CYANOCOBALAMIN, NICOTINAMI [Concomitant]

REACTIONS (25)
  - TRAUMATIC HAEMATOMA [None]
  - PAIN IN EXTREMITY [None]
  - CARPAL TUNNEL SYNDROME [None]
  - FEMUR FRACTURE [None]
  - OSTEOARTHRITIS [None]
  - JOINT RANGE OF MOTION DECREASED [None]
  - FALL [None]
  - GAIT DISTURBANCE [None]
  - ACTIVITIES OF DAILY LIVING IMPAIRED [None]
  - HYPOAESTHESIA [None]
  - PROCEDURAL HYPOTENSION [None]
  - RADICULITIS LUMBOSACRAL [None]
  - ARTHRALGIA [None]
  - LIMB ASYMMETRY [None]
  - PARAESTHESIA [None]
  - PROCEDURAL DIZZINESS [None]
  - IMPAIRED HEALING [None]
  - FRACTURE DISPLACEMENT [None]
  - MUSCULAR WEAKNESS [None]
  - GROIN PAIN [None]
  - PATHOLOGICAL FRACTURE [None]
  - FRACTURE NONUNION [None]
  - ANAEMIA POSTOPERATIVE [None]
  - OSTEOPENIA [None]
  - BONE PAIN [None]
